FAERS Safety Report 7012013-4 (Version None)
Quarter: 2010Q3

REPORT INFORMATION
  Report Type: 
  Country: None (occurrence: None)
  Receive Date: 20100924
  Receipt Date: 20100916
  Transmission Date: 20110219
  Serious: Yes (Other)
  Sender: FDA-Public Use
  Company Number: US-US-EMD SERONO, INC.-236766K09USA

PATIENT
  Sex: Female
  Weight: 59 kg

DRUGS (5)
  1. REBIF [Suspect]
     Indication: MULTIPLE SCLEROSIS
     Route: 058
     Dates: start: 20030811
  2. BENICAR/HYDROCHLOROTHIAZIDE [Concomitant]
     Indication: HYPERTENSION
  3. METOPROLOL TARTRATE [Concomitant]
     Indication: HYPERTENSION
  4. TYLENOL [Concomitant]
     Indication: INFLUENZA LIKE ILLNESS
  5. UNSPECIFIED STEROIDS [Concomitant]
     Indication: MULTIPLE SCLEROSIS

REACTIONS (7)
  - ARTHRALGIA [None]
  - CATARACT [None]
  - FOREIGN BODY REACTION [None]
  - INJECTION SITE INDURATION [None]
  - MALIGNANT MELANOMA [None]
  - MULTIPLE SCLEROSIS RELAPSE [None]
  - OPEN WOUND [None]
